FAERS Safety Report 6994074-1 (Version None)
Quarter: 2010Q3

REPORT INFORMATION
  Report Type: 
  Country: None (occurrence: None)
  Receive Date: 20100917
  Receipt Date: 20080218
  Transmission Date: 20110219
  Serious: Yes (Other)
  Sender: FDA-Public Use
  Company Number: US-ASTRAZENECA-2007UW19144

PATIENT
  Age: 17501 Day
  Sex: Female
  Weight: 90.7 kg

DRUGS (12)
  1. SEROQUEL [Suspect]
     Indication: DEPRESSION
     Dosage: 400 MG EVERYDAY
     Route: 048
     Dates: start: 20000101, end: 20060315
  2. SEROQUEL [Suspect]
     Indication: SLEEP DISORDER
     Dosage: 400 MG EVERYDAY
     Route: 048
     Dates: start: 20000101, end: 20060315
  3. SEROQUEL [Suspect]
     Dosage: 25 - 1200 MG FLUCTUATING DOSE
     Route: 048
     Dates: start: 20010604
  4. SEROQUEL [Suspect]
     Dosage: 25 - 1200 MG FLUCTUATING DOSE
     Route: 048
     Dates: start: 20010604
  5. ZYPREXA [Concomitant]
     Dates: start: 19980101
  6. PROZAC [Concomitant]
     Route: 048
     Dates: start: 19960708
  7. NEURONTIN [Concomitant]
     Dates: start: 20010604
  8. DEPAKOTE [Concomitant]
     Dosage: 500 MG 4 AT NIGHT, 500 MG AT HS FOR 7 DAYS THEN 2 TAB HS
     Route: 048
     Dates: start: 20010604
  9. REMERON [Concomitant]
     Route: 048
     Dates: start: 20010628
  10. CELEXA [Concomitant]
     Dosage: 20 MG 1/2 AT MORNING
     Route: 048
     Dates: start: 20010604
  11. INDERAL [Concomitant]
     Indication: TACHYCARDIA
     Dates: start: 20000727
  12. PREMPRO [Concomitant]
     Dosage: DAILY
     Dates: start: 19950204

REACTIONS (3)
  - DIABETES MELLITUS [None]
  - DIABETES MELLITUS INADEQUATE CONTROL [None]
  - TYPE 2 DIABETES MELLITUS [None]
